FAERS Safety Report 18632743 (Version 4)
Quarter: 2021Q3

REPORT INFORMATION
  Report Type: Spontaneous
  Country: US (occurrence: US)
  Receive Date: 20201218
  Receipt Date: 20210924
  Transmission Date: 20211014
  Serious: Yes (Other)
  Sender: FDA-Public Use
  Company Number: US-JNJFOC-20201220568

PATIENT
  Age: 6 Decade
  Sex: Female

DRUGS (9)
  1. AMITRIPTYLINE [Concomitant]
     Active Substance: AMITRIPTYLINE
     Indication: CYSTITIS INTERSTITIAL
     Route: 065
     Dates: start: 20120622
  2. ELMIRON [Suspect]
     Active Substance: PENTOSAN POLYSULFATE SODIUM
     Indication: CYSTITIS INTERSTITIAL
     Route: 048
     Dates: start: 2010
  3. DELZICOL [Concomitant]
     Active Substance: MESALAMINE
     Indication: COLITIS
     Route: 065
     Dates: start: 20170207, end: 201810
  4. PANTOPRAZOLE [Concomitant]
     Active Substance: PANTOPRAZOLE
     Indication: GASTROOESOPHAGEAL REFLUX DISEASE
     Route: 065
     Dates: start: 20170207
  5. WELLBUTRIN [Concomitant]
     Active Substance: BUPROPION HYDROCHLORIDE
     Indication: DEPRESSION
     Route: 065
     Dates: start: 20200915
  6. ELMIRON [Suspect]
     Active Substance: PENTOSAN POLYSULFATE SODIUM
     Route: 048
     Dates: start: 20120622, end: 201906
  7. CLONIDINE. [Concomitant]
     Active Substance: CLONIDINE
     Indication: PANIC ATTACK
     Route: 065
     Dates: start: 20200915
  8. VITAMIN D3 [Concomitant]
     Active Substance: CHOLECALCIFEROL
     Indication: VITAMIN D DEFICIENCY
     Route: 065
     Dates: start: 202105
  9. DONEPEZIL. [Concomitant]
     Active Substance: DONEPEZIL
     Indication: MEMORY IMPAIRMENT
     Route: 065
     Dates: start: 202012

REACTIONS (2)
  - Maculopathy [Unknown]
  - Macular degeneration [Unknown]

NARRATIVE: CASE EVENT DATE: 2019
